FAERS Safety Report 5598069-4 (Version None)
Quarter: 2008Q1

REPORT INFORMATION
  Report Type: 
  Country: None (occurrence: None)
  Receive Date: 20080122
  Receipt Date: 20080110
  Transmission Date: 20080703
  Serious: Yes (Hospitalization)
  Sender: FDA-Public Use
  Company Number: US-ELI_LILLY_AND_COMPANY-US200801002260

PATIENT
  Sex: Female

DRUGS (4)
  1. FORTEO [Suspect]
     Indication: OSTEOPOROSIS
     Dosage: UNK, UNK
     Dates: start: 20060101, end: 20071101
  2. FORTEO [Suspect]
     Dates: start: 20071201
  3. PREVACID [Concomitant]
  4. CALCIUM GLUCONATE [Concomitant]

REACTIONS (2)
  - GALLBLADDER NON-FUNCTIONING [None]
  - NAUSEA [None]
